FAERS Safety Report 9362098 (Version 1)
Quarter: 2013Q2

REPORT INFORMATION
  Report Type: Report from Study
  Country: IN (occurrence: IN)
  Receive Date: 20130621
  Receipt Date: 20130621
  Transmission Date: 20140414
  Serious: Yes (Other)
  Sender: FDA-Public Use
  Company Number: IN-BAXTER-2013BAX023378

PATIENT
  Sex: Female

DRUGS (5)
  1. ISOFLURANE USP (AERRANE) 100ML + 250ML GLASS BOTTLES - INHALATION ANAE [Suspect]
     Indication: MAINTENANCE OF ANAESTHESIA
  2. THIOPENTONE /00053401/ [Suspect]
     Indication: MAINTENANCE OF ANAESTHESIA
  3. SUXAMETHONIUM [Suspect]
     Indication: MAINTENANCE OF ANAESTHESIA
  4. ATRACURIUM /00614702/ [Suspect]
     Indication: MAINTENANCE OF ANAESTHESIA
  5. NITROUS OXIDE 50% [Suspect]
     Indication: MAINTENANCE OF ANAESTHESIA

REACTIONS (2)
  - Premature delivery [Recovered/Resolved]
  - Exposure during pregnancy [Recovered/Resolved]
